FAERS Safety Report 23037732 (Version 1)
Quarter: 2023Q4

REPORT INFORMATION
  Report Type: Spontaneous
  Country: US (occurrence: None)
  Receive Date: 20231005
  Receipt Date: 20231005
  Transmission Date: 20240110
  Serious: Yes (Hospitalization)
  Sender: FDA-Public Use
  Company Number: None

PATIENT
  Age: 75 Year
  Sex: Female

DRUGS (10)
  1. ADEMPAS [Suspect]
     Active Substance: RIOCIGUAT
     Indication: Pulmonary arterial hypertension
     Dosage: FREQUENCY : 3 TIMES A DAY;?
     Route: 048
     Dates: start: 20200923
  2. AMBRISENTAN [Concomitant]
     Active Substance: AMBRISENTAN
  3. ONDANSETRON [Concomitant]
     Active Substance: ONDANSETRON
  4. BUDESONIDE [Concomitant]
     Active Substance: BUDESONIDE
  5. FUROSEMIDE [Concomitant]
     Active Substance: FUROSEMIDE
  6. ATORVASTATIN [Concomitant]
     Active Substance: ATORVASTATIN
  7. atenolo [Concomitant]
  8. LEVOTHYROXINE [Concomitant]
     Active Substance: LEVOTHYROXINE
  9. OMEPRAZOLE [Concomitant]
     Active Substance: OMEPRAZOLE
  10. TYLENOL [Concomitant]

REACTIONS (4)
  - Nausea [None]
  - Vomiting [None]
  - Intestinal obstruction [None]
  - Crohn^s disease [None]

NARRATIVE: CASE EVENT DATE: 20230914
